FAERS Safety Report 9004768 (Version 1)
Quarter: 2013Q1

REPORT INFORMATION
  Report Type: Spontaneous
  Country: US (occurrence: US)
  Receive Date: 20130109
  Receipt Date: 20130109
  Transmission Date: 20140127
  Serious: No
  Sender: FDA-Public Use
  Company Number: US-PFIZER INC-2013006760

PATIENT
  Age: 75 Year
  Sex: Female
  Weight: 85.71 kg

DRUGS (3)
  1. ATIVAN [Suspect]
     Dosage: UNK
  2. ROBAXIN [Suspect]
     Dosage: UNK
  3. ZOSYN [Suspect]
     Dosage: UNK

REACTIONS (1)
  - Drug hypersensitivity [Unknown]
